FAERS Safety Report 12495821 (Version 4)
Quarter: 2018Q4

REPORT INFORMATION
  Report Type: Spontaneous
  Country: FR (occurrence: FR)
  Receive Date: 20160624
  Receipt Date: 20181025
  Transmission Date: 20190204
  Serious: Yes (Death, Life-Threatening, Hospitalization, Other)
  Sender: FDA-Public Use
  Company Number: FR-BAYER-2016-120097

PATIENT
  Age: 14 Year
  Sex: Female

DRUGS (1)
  1. STIVARGA [Suspect]
     Active Substance: REGORAFENIB
     Dosage: 120 MG, QD
     Dates: end: 20150108

REACTIONS (13)
  - Death [Fatal]
  - Pyrexia [None]
  - Skin depigmentation [None]
  - Hypophosphataemia [None]
  - Anaemia [None]
  - Blood thyroid stimulating hormone increased [None]
  - Neoplasm malignant [Unknown]
  - Cough [None]
  - Blood lactate dehydrogenase increased [None]
  - Fatigue [None]
  - Musculoskeletal pain [None]
  - Fibrin D dimer increased [None]
  - Systemic inflammatory response syndrome [None]

NARRATIVE: CASE EVENT DATE: 20141008
